FAERS Safety Report 9700201 (Version 1)
Quarter: 2013Q4

REPORT INFORMATION
  Report Type: Spontaneous
  Country: CA (occurrence: None)
  Receive Date: 20131119
  Receipt Date: 20131119
  Transmission Date: 20140711
  Serious: Yes (Life-Threatening, Hospitalization)
  Sender: FDA-Public Use
  Company Number: 2013P1020857

PATIENT
  Age: 39 Year
  Sex: Male

DRUGS (6)
  1. PROPRANOLOL [Suspect]
     Route: 048
  2. PENTOBARBITAL [Suspect]
     Route: 030
  3. ACEPROMAZINE [Suspect]
  4. DETOMIDINE [Suspect]
     Route: 048
  5. DETOMIDINE [Suspect]
     Route: 030
  6. ROMIFIDINE [Suspect]
     Route: 030

REACTIONS (14)
  - Respiratory depression [None]
  - Bradycardia [None]
  - Intentional overdose [None]
  - Suicide attempt [None]
  - Dysarthria [None]
  - Miosis [None]
  - Pallor [None]
  - Blood pressure decreased [None]
  - Body temperature decreased [None]
  - Electrocardiogram QRS complex shortened [None]
  - Blood potassium increased [None]
  - Aspartate aminotransferase increased [None]
  - Blood creatine phosphokinase increased [None]
  - Mental status changes [None]
